FAERS Safety Report 12663187 (Version 1)
Quarter: 2016Q3

REPORT INFORMATION
  Report Type: Spontaneous
  Country: IT (occurrence: None)
  Receive Date: 20160817
  Receipt Date: 20160817
  Transmission Date: 20161109
  Serious: Yes (Hospitalization)
  Sender: FDA-Public Use
  Company Number: None

PATIENT
  Age: 48 Year
  Sex: Female
  Weight: 97 kg

DRUGS (4)
  1. XEPLION [Concomitant]
     Active Substance: PALIPERIDONE PALMITATE
  2. SEROQUEL [Suspect]
     Active Substance: QUETIAPINE FUMARATE
     Indication: PSYCHOTIC DISORDER
     Route: 048
     Dates: start: 20090804
  3. EUTIROX [Concomitant]
     Active Substance: LEVOTHYROXINE SODIUM
  4. ENTUMIN [Concomitant]
     Active Substance: CLOTHIAPINE

REACTIONS (5)
  - Anxiety [None]
  - Self-injurious ideation [None]
  - Nervousness [None]
  - Aggression [None]
  - Hallucination [None]

NARRATIVE: CASE EVENT DATE: 20160404
